FAERS Safety Report 5419198-1 (Version None)
Quarter: 2007Q3

REPORT INFORMATION
  Report Type: 
  Country: None (occurrence: None)
  Receive Date: 20070816
  Receipt Date: 20070816
  Transmission Date: 20080115
  Serious: No
  Sender: FDA-Public Use
  Company Number: None

PATIENT
  Age: 43 Year
  Sex: Female

DRUGS (1)
  1. VISIPAQUE 320 [Suspect]
     Indication: NEPHROLITHIASIS
     Dosage: 100ML 1 X IV
     Route: 042
     Dates: start: 20070731

REACTIONS (4)
  - CHEST DISCOMFORT [None]
  - DRUG HYPERSENSITIVITY [None]
  - DYSPNOEA [None]
  - NAUSEA [None]
